FAERS Safety Report 6920372-3 (Version None)
Quarter: 2010Q3

REPORT INFORMATION
  Report Type: 
  Country: None (occurrence: None)
  Receive Date: 20100804
  Receipt Date: 20100720
  Transmission Date: 20110219
  Serious: No
  Sender: FDA-Public Use
  Company Number: 2010-00522

PATIENT
  Sex: Female

DRUGS (1)
  1. ZICAM COLD REMEDY GEL SWABS [Suspect]
     Dosage: 6 DOSES
     Dates: start: 20090101

REACTIONS (1)
  - ANOSMIA [None]
